FAERS Safety Report 23303405 (Version 2)
Quarter: 2024Q1

REPORT INFORMATION
  Report Type: Spontaneous
  Country: JP (occurrence: JP)
  Receive Date: 20231215
  Receipt Date: 20240209
  Transmission Date: 20240410
  Serious: Yes (Other)
  Sender: FDA-Public Use
  Company Number: JP-OTSUKA-2023_032435

PATIENT
  Age: 60 Year
  Sex: Male

DRUGS (10)
  1. REXULTI [Suspect]
     Active Substance: BREXPIPRAZOLE
     Indication: Product used for unknown indication
     Dosage: 2MG
     Route: 065
  2. REXULTI [Suspect]
     Active Substance: BREXPIPRAZOLE
     Dosage: 1MG
     Route: 065
  3. VALPROATE SODIUM [Concomitant]
     Active Substance: VALPROATE SODIUM
     Indication: Product used for unknown indication
     Dosage: 400MG
     Route: 065
  4. BLONANSERIN [Concomitant]
     Active Substance: BLONANSERIN
     Indication: Product used for unknown indication
     Dosage: UNK
     Route: 065
  5. BLONANSERIN [Concomitant]
     Active Substance: BLONANSERIN
     Dosage: 24MG
     Route: 065
  6. BLONANSERIN [Concomitant]
     Active Substance: BLONANSERIN
     Dosage: 8MG
     Route: 065
  7. BLONANSERIN [Concomitant]
     Active Substance: BLONANSERIN
     Dosage: 4MG
     Route: 065
  8. PROMETHAZINE HYDROCHLORIDE [Concomitant]
     Active Substance: PROMETHAZINE HYDROCHLORIDE
     Indication: Product used for unknown indication
     Dosage: 40MG
     Route: 065
  9. ESZOPICLONE [Concomitant]
     Active Substance: ESZOPICLONE
     Indication: Product used for unknown indication
     Dosage: 3MG
     Route: 065
  10. ZOTEPINE [Concomitant]
     Active Substance: ZOTEPINE
     Indication: Product used for unknown indication
     Dosage: 150MG
     Route: 065

REACTIONS (1)
  - Schizophrenia [Unknown]
